FAERS Safety Report 10503756 (Version 1)
Quarter: 2014Q4

REPORT INFORMATION
  Report Type: Spontaneous
  Country: US (occurrence: None)
  Receive Date: 20141007
  Receipt Date: 20141007
  Transmission Date: 20150528
  Serious: Yes (Other)
  Sender: FDA-Public Use
  Company Number: None

PATIENT
  Age: 12 Year
  Sex: Male

DRUGS (4)
  1. ZYPREXA [Suspect]
     Active Substance: OLANZAPINE
     Indication: AUTISM SPECTRUM DISORDER
     Route: 048
     Dates: start: 20140624, end: 20141006
  2. ZYPREXA [Suspect]
     Active Substance: OLANZAPINE
     Indication: INTERMITTENT EXPLOSIVE DISORDER
     Route: 048
     Dates: start: 20140624, end: 20141006
  3. ZYPREXA [Suspect]
     Active Substance: OLANZAPINE
     Indication: OPPOSITIONAL DEFIANT DISORDER
     Route: 048
     Dates: start: 20140624, end: 20141006
  4. ZYPREXA [Suspect]
     Active Substance: OLANZAPINE
     Indication: GENERALISED ANXIETY DISORDER
     Route: 048
     Dates: start: 20140624, end: 20141006

REACTIONS (5)
  - Unevaluable event [None]
  - Theft [None]
  - Product substitution issue [None]
  - Abnormal behaviour [None]
  - Aggression [None]

NARRATIVE: CASE EVENT DATE: 20140624
